FAERS Safety Report 10523008 (Version 12)
Quarter: 2017Q1

REPORT INFORMATION
  Report Type: Spontaneous
  Country: US (occurrence: US)
  Receive Date: 20141016
  Receipt Date: 20170104
  Transmission Date: 20170428
  Serious: Yes (Hospitalization, Other)
  Sender: FDA-Public Use
  Company Number: US-GLAXOSMITHKLINE-US2014GSK007241

PATIENT
  Age: 45 Year
  Sex: Female
  Weight: 59.41 kg

DRUGS (16)
  1. FLOLAN [Suspect]
     Active Substance: EPOPROSTENOL SODIUM
     Dosage: UNK
  2. FLOLAN [Suspect]
     Active Substance: EPOPROSTENOL SODIUM
     Dosage: 36 DF, CO
     Route: 042
  3. SPIRONOLACTONE. [Concomitant]
     Active Substance: SPIRONOLACTONE
  4. FLOLAN [Suspect]
     Active Substance: EPOPROSTENOL SODIUM
     Indication: PULMONARY ARTERIAL HYPERTENSION
     Dosage: UNK
  5. FLOLAN [Suspect]
     Active Substance: EPOPROSTENOL SODIUM
     Dosage: UNK, CO
     Route: 042
  6. REVATIO [Concomitant]
     Active Substance: SILDENAFIL CITRATE
  7. DILTIAZEM. [Concomitant]
     Active Substance: DILTIAZEM
  8. FLOLAN [Suspect]
     Active Substance: EPOPROSTENOL SODIUM
     Dosage: 39 NG/KG/MIN
     Route: 042
  9. FLOLAN [Suspect]
     Active Substance: EPOPROSTENOL SODIUM
     Dosage: UNK
  10. FLOLAN [Suspect]
     Active Substance: EPOPROSTENOL SODIUM
     Dosage: 36 DF, CO
  11. WARFARIN [Concomitant]
     Active Substance: WARFARIN
  12. FLOLAN [Suspect]
     Active Substance: EPOPROSTENOL SODIUM
     Indication: PULMONARY ARTERIAL HYPERTENSION
  13. FLOLAN [Suspect]
     Active Substance: EPOPROSTENOL SODIUM
     Dosage: 36 NG/KG/MIN
     Route: 042
  14. LASIX [Concomitant]
     Active Substance: FUROSEMIDE
  15. K-DUR [Concomitant]
     Active Substance: POTASSIUM CHLORIDE
  16. FLOLAN [Suspect]
     Active Substance: EPOPROSTENOL SODIUM
     Indication: PULMONARY ARTERIAL HYPERTENSION
     Dosage: 34 NG/KG/MIN CONTINUOUS, CONC: 30,000 NG/ML, PUMP RATE: 91 ML/DAY, VIAL STRENGTH: 1.5 MG
     Route: 042
     Dates: start: 19971224

REACTIONS (18)
  - Blood culture positive [Recovered/Resolved]
  - Blood creatinine increased [Recovered/Resolved]
  - Central venous catheterisation [Recovered/Resolved]
  - Sepsis [Unknown]
  - Headache [Unknown]
  - Catheter site vesicles [Unknown]
  - Gout [Recovered/Resolved]
  - Device related infection [Recovered/Resolved]
  - Catheter site erythema [Unknown]
  - Scab [Unknown]
  - Bacterial infection [Recovered/Resolved]
  - Acute kidney injury [Recovered/Resolved]
  - Skin irritation [Unknown]
  - Impaired healing [Unknown]
  - Central venous catheter removal [Recovered/Resolved]
  - Catheter site inflammation [Unknown]
  - Catheter site pruritus [Unknown]
  - Catheter site infection [Recovering/Resolving]

NARRATIVE: CASE EVENT DATE: 20140918
